FAERS Safety Report 4377587-0 (Version None)
Quarter: 2004Q2

REPORT INFORMATION
  Report Type: 
  Country: None (occurrence: None)
  Receive Date: 20040615
  Receipt Date: 20010711
  Transmission Date: 20050107
  Serious: Yes (Hospitalization)
  Sender: FDA-Public Use
  Company Number: US-GLAXOSMITHKLINE-A0154045A

PATIENT
  Age: 6 Week
  Sex: Male
  Weight: 4.5 kg

DRUGS (1)
  1. ZANTAC [Suspect]
     Dosage: 75MG TWICE PER DAY
     Route: 048

REACTIONS (5)
  - CHOKING [None]
  - DYSPNOEA [None]
  - MEDICATION ERROR [None]
  - OVERDOSE [None]
  - VOMITING [None]
